FAERS Safety Report 26027042 (Version 1)
Quarter: 2025Q4

REPORT INFORMATION
  Report Type: Spontaneous
  Country: TW (occurrence: TW)
  Receive Date: 20251111
  Receipt Date: 20251111
  Transmission Date: 20260118
  Serious: Yes (Life-Threatening, Other)
  Sender: PFIZER
  Company Number: TW-PFIZER INC-PV202500130425

PATIENT
  Age: 76 Year
  Sex: Male
  Weight: 61.9 kg

DRUGS (9)
  1. ADRIAMYCIN [Suspect]
     Active Substance: DOXORUBICIN HYDROCHLORIDE
     Indication: Lymphoma
     Dosage: 65 MG, CYCLIC (ONCE PER CYCLE)
     Route: 041
     Dates: start: 20250809, end: 20250809
  2. VINCRISTINE SULFATE [Suspect]
     Active Substance: VINCRISTINE SULFATE
     Indication: Lymphoma
     Dosage: 2 MG, USE ONCE EVERY IMMEDIATELY
     Route: 041
     Dates: start: 20250809, end: 20250809
  3. MABTHERA [Suspect]
     Active Substance: RITUXIMAB
     Indication: Lymphoma
     Dosage: 600 MG, CYCLIC (ONCE PER CYCLE)
     Route: 041
     Dates: start: 20250807, end: 20250807
  4. CYCLOPHOSPHAMIDE [Suspect]
     Active Substance: CYCLOPHOSPHAMIDE
     Indication: Lymphoma
     Dosage: 970 MG, CYCLIC (ONCE PER CYCLE)
     Route: 041
     Dates: start: 20250809, end: 20250809
  5. PREDNISOLONE [Concomitant]
     Active Substance: PREDNISOLONE
     Indication: Lymphoma
     Dosage: 10 MG, 3X/DAY (TID) (ONCE EVERY 0.33 DAY)
     Route: 048
     Dates: start: 20250723, end: 20250811
  6. PREDNISOLONE [Concomitant]
     Active Substance: PREDNISOLONE
     Indication: Immune thrombocytopenia
  7. CYCLOSPORINE [Concomitant]
     Active Substance: CYCLOSPORINE
     Indication: Immune thrombocytopenia
     Dosage: 125 MG, 2X/DAY (ONCE EVERY 0.5 DAY)
     Route: 048
     Dates: start: 20250723, end: 20250811
  8. MORCASIN [Concomitant]
     Indication: Infection prophylaxis
     Dosage: 1 DF, 2X/DAY (ONCE EVERY 0.5 DAY)
     Route: 048
     Dates: start: 20250808, end: 20251104
  9. VALTREX [Concomitant]
     Active Substance: VALACYCLOVIR HYDROCHLORIDE
     Indication: Infection prophylaxis
     Dosage: 500 MG, 2X/DAY (ONCE EVERY 0.5 DAY)
     Route: 048
     Dates: start: 20250808, end: 20251104

REACTIONS (1)
  - Neutrophil count decreased [Recovered/Resolved]

NARRATIVE: CASE EVENT DATE: 20250814
